FAERS Safety Report 9683626 (Version 1)
Quarter: 2013Q4

REPORT INFORMATION
  Report Type: Spontaneous
  Country: US (occurrence: US)
  Receive Date: 20131112
  Receipt Date: 20131112
  Transmission Date: 20140711
  Serious: Yes (Hospitalization)
  Sender: FDA-Public Use
  Company Number: US-PFIZER INC-2013318330

PATIENT
  Age: 56 Year
  Sex: Male
  Weight: 127 kg

DRUGS (4)
  1. INLYTA [Suspect]
     Indication: RENAL CANCER
     Dosage: 3 MG, 2X/DAY
     Dates: start: 201106, end: 201310
  2. LOVENOX [Suspect]
     Indication: ANTICOAGULANT THERAPY
     Dosage: 0.75 MG, 2X/DAY
     Dates: start: 2013, end: 20131015
  3. GLIPIZIDE [Concomitant]
     Indication: DIABETES MELLITUS
     Dosage: 5 MG, 2X/DAY
  4. GLIPIZIDE [Concomitant]
     Dosage: 5 MG, 1X/DAY

REACTIONS (2)
  - Urinary bladder haemorrhage [Not Recovered/Not Resolved]
  - Dysuria [Not Recovered/Not Resolved]
